FAERS Safety Report 16456082 (Version 1)
Quarter: 2019Q2

REPORT INFORMATION
  Report Type: Spontaneous
  Country: FR (occurrence: FR)
  Receive Date: 20190620
  Receipt Date: 20190620
  Transmission Date: 20190711
  Serious: Yes (Other)
  Sender: FDA-Public Use
  Company Number: FR-BRISTOL-MYERS SQUIBB COMPANY-BMS-2019-057229

PATIENT
  Age: 45 Year
  Sex: Female
  Weight: 55 kg

DRUGS (1)
  1. OPDIVO [Suspect]
     Active Substance: NIVOLUMAB
     Indication: BRONCHIAL CARCINOMA
     Dosage: 240 MILLIGRAM, QCYCLE
     Route: 041
     Dates: start: 20190321, end: 20190516

REACTIONS (5)
  - Muscle disorder [Not Recovered/Not Resolved]
  - Stomatitis [Not Recovered/Not Resolved]
  - Fall [Not Recovered/Not Resolved]
  - Anaemia [Not Recovered/Not Resolved]
  - Electromyogram abnormal [Not Recovered/Not Resolved]

NARRATIVE: CASE EVENT DATE: 20190516
